FAERS Safety Report 21152973 (Version 1)
Quarter: 2022Q3

REPORT INFORMATION
  Report Type: Spontaneous
  Country: US (occurrence: US)
  Receive Date: 20220730
  Receipt Date: 20220730
  Transmission Date: 20221027
  Serious: No
  Sender: FDA-Public Use
  Company Number: US-SA-SAC20220727000297

PATIENT
  Age: 16 Year

DRUGS (1)
  1. ALPROLIX [Suspect]
     Active Substance: EFTRENONACOG ALFA
     Indication: Haemorrhage
     Dosage: 6000 U, PRN
     Route: 065

REACTIONS (2)
  - Joint swelling [Unknown]
  - Joint injury [Unknown]

NARRATIVE: CASE EVENT DATE: 20220422
